FAERS Safety Report 21065128 (Version 1)
Quarter: 2022Q3

REPORT INFORMATION
  Report Type: Other
  Country: MY (occurrence: MY)
  Receive Date: 20220711
  Receipt Date: 20220711
  Transmission Date: 20221027
  Serious: Yes (Other)
  Sender: FDA-Public Use
  Company Number: MY-GLENMARK PHARMACEUTICALS-2022GMK073512

PATIENT

DRUGS (1)
  1. LEVOFLOXACIN [Suspect]
     Active Substance: LEVOFLOXACIN
     Indication: Upper respiratory tract infection
     Dosage: 500 MILLIGRAM, 1 DAY
     Route: 048

REACTIONS (3)
  - Wheezing [Recovering/Resolving]
  - Urticaria [Recovering/Resolving]
  - Product use in unapproved indication [Unknown]
